FAERS Safety Report 7622769-5 (Version None)
Quarter: 2011Q3

REPORT INFORMATION
  Report Type: 
  Country: None (occurrence: None)
  Receive Date: 20110719
  Receipt Date: 20110719
  Transmission Date: 20111222
  Serious: Yes (Other)
  Sender: FDA-Public Use
  Company Number: None

PATIENT
  Age: 26 Year
  Sex: Male

DRUGS (1)
  1. EFAVIRENZ [Suspect]
     Indication: URTICARIA
     Dosage: 600 MG QMS PO
     Route: 048
     Dates: start: 20110315, end: 20110404

REACTIONS (1)
  - RASH MORBILLIFORM [None]
